FAERS Safety Report 9688375 (Version 1)
Quarter: 2013Q4

REPORT INFORMATION
  Report Type: Spontaneous
  Country: US (occurrence: None)
  Receive Date: 20131113
  Receipt Date: 20131113
  Transmission Date: 20140711
  Serious: Yes (Hospitalization, Disabling)
  Sender: FDA-Public Use
  Company Number: None

PATIENT
  Age: 86 Year
  Sex: Female
  Weight: 45.36 kg

DRUGS (1)
  1. CYMBALTA [Suspect]
     Dates: start: 20130925

REACTIONS (7)
  - Dry mouth [None]
  - Muscle twitching [None]
  - Confusional state [None]
  - Hallucination [None]
  - Fall [None]
  - Memory impairment [None]
  - Gait disturbance [None]
